FAERS Safety Report 14225194 (Version 1)
Quarter: 2017Q4

REPORT INFORMATION
  Report Type: Spontaneous
  Country: US (occurrence: None)
  Receive Date: 20171122
  Receipt Date: 20171122
  Transmission Date: 20180321
  Serious: Yes (Hospitalization)
  Sender: FDA-Public Use
  Company Number: None

PATIENT
  Sex: Female

DRUGS (4)
  1. METOPROLOL SUMATRIPTAN [Concomitant]
  2. GENTAMICIN. [Concomitant]
     Active Substance: GENTAMICIN
  3. OXYCODO/APAP [Concomitant]
  4. ENBREL [Suspect]
     Active Substance: ETANERCEPT
     Indication: PSORIATIC ARTHROPATHY
     Route: 058

REACTIONS (3)
  - Therapy cessation [None]
  - Ileostomy closure [None]
  - Condition aggravated [None]

NARRATIVE: CASE EVENT DATE: 2017
